FAERS Safety Report 12417468 (Version 2)
Quarter: 2016Q4

REPORT INFORMATION
  Report Type: Spontaneous
  Country: GB (occurrence: GB)
  Receive Date: 20160530
  Receipt Date: 20161004
  Transmission Date: 20170207
  Serious: Yes (Other)
  Sender: FDA-Public Use
  Company Number: GB-JNJFOC-20151117067

PATIENT

DRUGS (1)
  1. INFLIXIMAB, RECOMBINANT [Suspect]
     Active Substance: INFLIXIMAB
     Indication: PSORIASIS
     Route: 042

REACTIONS (16)
  - Hepatobiliary disease [Unknown]
  - Procedural complication [Unknown]
  - Gastrointestinal disorder [Unknown]
  - Respiratory disorder [Unknown]
  - Adverse drug reaction [Unknown]
  - Musculoskeletal disorder [Unknown]
  - Drug ineffective [Unknown]
  - Infection [Unknown]
  - Infestation [Unknown]
  - Connective tissue disorder [Unknown]
  - Mental disorder [Unknown]
  - Mediastinal disorder [Unknown]
  - Poisoning [Unknown]
  - Injury [Unknown]
  - Skin disorder [Unknown]
  - Immune system disorder [Unknown]
